FAERS Safety Report 8998049 (Version 1)
Quarter: 2013Q1

REPORT INFORMATION
  Report Type: Spontaneous
  Country: US (occurrence: US)
  Receive Date: 20130104
  Receipt Date: 20130104
  Transmission Date: 20140127
  Serious: No
  Sender: FDA-Public Use
  Company Number: US-ASTRAZENECA-2008UW03768

PATIENT
  Age: 67 Year
  Sex: Male
  Weight: 93 kg

DRUGS (19)
  1. NEXIUM [Suspect]
     Indication: ABDOMINAL PAIN UPPER
     Route: 048
     Dates: start: 200710
  2. NEXIUM [Suspect]
     Indication: SENSATION OF FOREIGN BODY
     Route: 048
     Dates: start: 200710
  3. NEXIUM [Suspect]
     Indication: CHEST PAIN
     Route: 048
     Dates: start: 200710
  4. NEXIUM [Suspect]
     Indication: GASTROOESOPHAGEAL REFLUX DISEASE
     Route: 048
     Dates: start: 200710
  5. NEXIUM [Suspect]
     Indication: ABDOMINAL PAIN UPPER
     Route: 048
  6. NEXIUM [Suspect]
     Indication: SENSATION OF FOREIGN BODY
     Route: 048
  7. NEXIUM [Suspect]
     Indication: CHEST PAIN
     Route: 048
  8. NEXIUM [Suspect]
     Indication: GASTROOESOPHAGEAL REFLUX DISEASE
     Route: 048
  9. NEXIUM [Suspect]
     Indication: ABDOMINAL PAIN UPPER
     Route: 048
  10. NEXIUM [Suspect]
     Indication: SENSATION OF FOREIGN BODY
     Route: 048
  11. NEXIUM [Suspect]
     Indication: CHEST PAIN
     Route: 048
  12. NEXIUM [Suspect]
     Indication: GASTROOESOPHAGEAL REFLUX DISEASE
     Route: 048
  13. OMEPRAZOLE [Suspect]
     Route: 048
  14. PROSCAR [Concomitant]
  15. SALMON OIL [Concomitant]
  16. ONE A DAY [Concomitant]
  17. POLYCASINOL [Concomitant]
  18. PROZAC [Concomitant]
  19. BABY ASA [Concomitant]

REACTIONS (3)
  - Sensation of foreign body [Unknown]
  - Constipation [Recovered/Resolved]
  - Drug ineffective [Unknown]
